FAERS Safety Report 6296869-9 (Version None)
Quarter: 2009Q3

REPORT INFORMATION
  Report Type: 
  Country: None (occurrence: None)
  Receive Date: 20090804
  Receipt Date: 20090727
  Transmission Date: 20100115
  Serious: Yes (Other)
  Sender: FDA-Public Use
  Company Number: JP-JNJFOC-20090706786

PATIENT
  Sex: Female

DRUGS (7)
  1. FINIBAX [Suspect]
     Route: 041
  2. FINIBAX [Suspect]
     Indication: INFECTION
     Route: 041
  3. JUZEN-TAIHO-TO [Suspect]
     Indication: UTERINE CANCER
     Dosage: 2.5 G X3
     Route: 048
  4. DAI-KENCHU-TO [Suspect]
     Indication: UTERINE CANCER
     Dosage: 5 G X3
     Route: 048
  5. CLINDAMYCIN [Concomitant]
     Route: 065
  6. GENTAMICIN SULFATE [Concomitant]
     Route: 065
  7. AMPICILLIN [Concomitant]
     Route: 065

REACTIONS (2)
  - RASH GENERALISED [None]
  - RENAL IMPAIRMENT [None]
